FAERS Safety Report 9813925 (Version 2)
Quarter: 2014Q1

REPORT INFORMATION
  Report Type: Spontaneous
  Country: GB (occurrence: GB)
  Receive Date: 20140113
  Receipt Date: 20140113
  Transmission Date: 20141002
  Serious: Yes (Other)
  Sender: FDA-Public Use
  Company Number: GB-VERTEX PHARMACEUTICALS INC-2013-011155

PATIENT
  Age: 58 Year
  Sex: Male
  Weight: 96.8 kg

DRUGS (4)
  1. INCIVO [Suspect]
     Indication: HEPATITIS C
     Dosage: 750 MG, TID
     Route: 048
     Dates: start: 20120813, end: 20120724
  2. INCIVO [Suspect]
     Route: 048
     Dates: start: 20120813, end: 20130724
  3. COPEGUS [Suspect]
     Indication: HEPATITIS C
     Dosage: 600 MG, QD
     Route: 065
     Dates: start: 20120813, end: 20130724
  4. PEGASYS [Suspect]
     Indication: HEPATITIS C
     Dosage: DOSAGE FORM: UNSPECIFIED, 180
     Route: 058
     Dates: start: 20120813, end: 20130724

REACTIONS (2)
  - Virologic failure [Recovered/Resolved]
  - Off label use [Unknown]
